FAERS Safety Report 9112709 (Version 1)
Quarter: 2013Q1

REPORT INFORMATION
  Report Type: Spontaneous
  Country: US (occurrence: US)
  Receive Date: 20130211
  Receipt Date: 20130211
  Transmission Date: 20140127
  Serious: Yes (Hospitalization, Other)
  Sender: FDA-Public Use
  Company Number: US-009507513-1302USA003615

PATIENT
  Sex: Female

DRUGS (10)
  1. FOSAMAX [Suspect]
     Indication: OSTEOPOROSIS
     Dosage: 70 MG, QW
     Route: 048
     Dates: start: 2002, end: 2007
  2. ALENDRONATE SODIUM [Suspect]
     Indication: OSTEOPOROSIS
     Dosage: 70 MG, QW
     Route: 048
     Dates: start: 2012
  3. CALCIUM (UNSPECIFIED) [Concomitant]
     Dosage: 1200 MG, UNK
     Dates: start: 1982
  4. ASCORBIC ACID [Concomitant]
     Dosage: 500 MG, UNK
     Dates: start: 1998
  5. GLUCOSAMINE SULFATE [Concomitant]
     Dosage: UNK
     Dates: start: 1998
  6. ADVAIR [Concomitant]
     Indication: ASTHMA
     Dosage: UNK
     Dates: start: 1997
  7. LEVOXYL [Concomitant]
     Indication: HYPOTHYROIDISM
     Dosage: UNK
     Dates: start: 1998
  8. MYSOLINE [Concomitant]
     Indication: TREMOR
     Dosage: UNK
     Dates: start: 2000
  9. NEURONTIN [Concomitant]
     Indication: MUSCLE SPASMS
     Dosage: UNK
     Dates: start: 2000
  10. PROZAC [Concomitant]
     Indication: DEPRESSION
     Dosage: UNK
     Dates: start: 1982

REACTIONS (9)
  - Femur fracture [Unknown]
  - Hip surgery [Unknown]
  - Fracture [Unknown]
  - Bone pain [Unknown]
  - Wrist fracture [Unknown]
  - Cervical vertebral fracture [Unknown]
  - Lower limb fracture [Unknown]
  - Stress fracture [Unknown]
  - Back pain [Not Recovered/Not Resolved]
